FAERS Safety Report 4844532-0 (Version None)
Quarter: 2005Q4

REPORT INFORMATION
  Report Type: 
  Country: None (occurrence: None)
  Receive Date: 20051130
  Receipt Date: 20051130
  Transmission Date: 20060501
  Serious: Yes (Other)
  Sender: FDA-Public Use
  Company Number: None

PATIENT
  Sex: Male
  Weight: 70.3075 kg

DRUGS (1)
  1. REMICADE [Suspect]
     Indication: RHEUMATOID ARTHRITIS
     Dosage: 500 MG BI-MONTHLY IV DRIP
     Route: 041
     Dates: start: 20000101, end: 20050701

REACTIONS (7)
  - CEREBRAL ATROPHY [None]
  - DECREASED APPETITE [None]
  - GAIT DISTURBANCE [None]
  - MOTOR DYSFUNCTION [None]
  - NUCLEAR MAGNETIC RESONANCE IMAGING BRAIN ABNORMAL [None]
  - SYSTEMIC LUPUS ERYTHEMATOSUS [None]
  - WEIGHT DECREASED [None]
